FAERS Safety Report 16483919 (Version 1)
Quarter: 2019Q2

REPORT INFORMATION
  Report Type: Spontaneous
  Country: RU (occurrence: RU)
  Receive Date: 20190627
  Receipt Date: 20190627
  Transmission Date: 20190711
  Serious: Yes (Other)
  Sender: FDA-Public Use
  Company Number: RU-PFIZER INC-2019270122

PATIENT
  Age: 43 Year
  Sex: Male

DRUGS (5)
  1. AXITINIB [Suspect]
     Active Substance: AXITINIB
     Indication: RENAL CANCER METASTATIC
     Dosage: 10 MG, UNK
     Dates: start: 201811
  2. AXITINIB [Suspect]
     Active Substance: AXITINIB
     Dosage: 10 MG, UNK
  3. AXITINIB [Suspect]
     Active Substance: AXITINIB
     Dosage: 14 MG, UNK
  4. AXITINIB [Suspect]
     Active Substance: AXITINIB
     Dosage: 20 MG, UNK
  5. AXITINIB [Suspect]
     Active Substance: AXITINIB
     Dosage: 14 MG, UNK

REACTIONS (3)
  - Lung abscess [Unknown]
  - Pneumonitis [Unknown]
  - Hypertension [Recovering/Resolving]

NARRATIVE: CASE EVENT DATE: 201901
